FAERS Safety Report 17851533 (Version 2)
Quarter: 2020Q3

REPORT INFORMATION
  Report Type: Spontaneous
  Country: US (occurrence: US)
  Receive Date: 20200602
  Receipt Date: 20200721
  Transmission Date: 20201103
  Serious: No
  Sender: FDA-Public Use
  Company Number: US-JNJFOC-20200521902

PATIENT
  Sex: Female

DRUGS (10)
  1. NEUTROGENA                         /00021201/ [Concomitant]
     Active Substance: SALICYLIC ACID
     Indication: DRY SKIN
     Route: 061
     Dates: start: 20200508
  2. ALOE                               /01332701/ [Concomitant]
     Active Substance: ALOE
     Indication: APPLICATION SITE RASH
  3. NEOSPORIN [Suspect]
     Active Substance: BACITRACIN ZINC\NEOMYCIN SULFATE\POLYMYXIN B SULFATE
     Indication: APPLICATION SITE SWELLING
     Route: 061
  4. MOTRIN [Suspect]
     Active Substance: IBUPROFEN
     Indication: APPLICATION SITE SWELLING
     Route: 065
  5. ALOE                               /01332701/ [Concomitant]
     Active Substance: ALOE
     Indication: APPLICATION SITE PAIN
  6. MOTRIN [Suspect]
     Active Substance: IBUPROFEN
     Indication: APPLICATION SITE PAIN
  7. NEOSPORIN [Suspect]
     Active Substance: BACITRACIN ZINC\NEOMYCIN SULFATE\POLYMYXIN B SULFATE
     Indication: APPLICATION SITE RASH
  8. ALOE                               /01332701/ [Concomitant]
     Active Substance: ALOE
     Indication: APPLICATION SITE SWELLING
     Route: 065
  9. NEOSPORIN [Suspect]
     Active Substance: BACITRACIN ZINC\NEOMYCIN SULFATE\POLYMYXIN B SULFATE
     Indication: APPLICATION SITE PAIN
  10. MOTRIN [Suspect]
     Active Substance: IBUPROFEN
     Indication: APPLICATION SITE RASH

REACTIONS (2)
  - Product use in unapproved indication [Unknown]
  - Therapeutic response unexpected [Unknown]
